FAERS Safety Report 21709180 (Version 1)
Quarter: 2022Q4

REPORT INFORMATION
  Report Type: Spontaneous
  Country: FR (occurrence: FR)
  Receive Date: 20221210
  Receipt Date: 20221210
  Transmission Date: 20230113
  Serious: Yes (Other)
  Sender: FDA-Public Use
  Company Number: None

PATIENT
  Age: 21 Year
  Sex: Male

DRUGS (8)
  1. METHYLPHENIDATE [Suspect]
     Active Substance: METHYLPHENIDATE
     Indication: Product used for unknown indication
     Dosage: 30 MG, QID (30 MG JUSQUA 4X/J)
     Route: 048
  2. MODAFINIL [Suspect]
     Active Substance: MODAFINIL
     Indication: Product used for unknown indication
     Dosage: 200 MG, TID (200 MG X3 /J PAR PERIODES)
     Route: 048
  3. PROMETHAZINE [Suspect]
     Active Substance: PROMETHAZINE HYDROCHLORIDE
     Indication: Product used for unknown indication
     Dosage: UNK
     Route: 048
  4. XANAX [Suspect]
     Active Substance: ALPRAZOLAM
     Indication: Product used for unknown indication
     Dosage: 1 MG, TID (1 MG 3X/J)
     Route: 048
  5. LYSERGIDE [Suspect]
     Active Substance: LYSERGIDE
     Indication: Product used for unknown indication
     Dosage: UNK (2 SEANCES DE 2 BUVARDS /WE, BUVARD A 200?G)
     Route: 048
  6. CODEINE\HERBALS [Suspect]
     Active Substance: CODEINE\HERBALS
     Indication: Product used for unknown indication
     Dosage: 600 MG, QD (600 MG/D BOUTEILLE EN SOIREE)
     Route: 048
  7. CANNABIS SATIVA SUBSP. INDICA TOP [Suspect]
     Active Substance: CANNABIS SATIVA SUBSP. INDICA TOP
     Indication: Product used for unknown indication
     Dosage: 3 G, QD (3 G /J EN 3 JOINTS THC A 40 PERCENT)
  8. ADDERALL [Suspect]
     Active Substance: AMPHETAMINE ASPARTATE\AMPHETAMINE SULFATE\DEXTROAMPHETAMINE SACCHARATE\DEXTROAMPHETAMINE SULFATE
     Indication: Product used for unknown indication
     Dosage: (3 CPS/2 J )
     Route: 048

REACTIONS (2)
  - Drug use disorder [Not Recovered/Not Resolved]
  - Substance use disorder [Not Recovered/Not Resolved]
